FAERS Safety Report 16411328 (Version 1)
Quarter: 2019Q2

REPORT INFORMATION
  Report Type: Spontaneous
  Country: CA (occurrence: CA)
  Receive Date: 20190610
  Receipt Date: 20190610
  Transmission Date: 20190711
  Serious: Yes (Other)
  Sender: FDA-Public Use
  Company Number: CA-TEVA-2019-CA-1061725

PATIENT
  Age: 45 Year
  Sex: Female

DRUGS (3)
  1. MEPOLIZUMAB [Suspect]
     Active Substance: MEPOLIZUMAB
     Route: 042
  2. MEPOLIZUMAB [Suspect]
     Active Substance: MEPOLIZUMAB
     Indication: ASTHMA
     Route: 042
  3. PREDNISONE. [Suspect]
     Active Substance: PREDNISONE
     Indication: PRODUCT USED FOR UNKNOWN INDICATION
     Dosage: 10 MILLIGRAM DAILY;
     Route: 048

REACTIONS (8)
  - Hypertension [Recovering/Resolving]
  - Contusion [Recovering/Resolving]
  - Emotional distress [Recovering/Resolving]
  - Family stress [Recovering/Resolving]
  - Increased tendency to bruise [Recovering/Resolving]
  - Haemorrhoids [Recovering/Resolving]
  - Anxiety [Recovering/Resolving]
  - Rectal haemorrhage [Recovering/Resolving]
